FAERS Safety Report 25787570 (Version 1)
Quarter: 2025Q3

REPORT INFORMATION
  Report Type: Spontaneous
  Country: US (occurrence: US)
  Receive Date: 20250910
  Receipt Date: 20250910
  Transmission Date: 20251020
  Serious: No
  Sender: DOMPE FARMACEUTICI
  Company Number: US-FARMAPROD-202407-2550

PATIENT
  Sex: Male

DRUGS (15)
  1. OXERVATE [Suspect]
     Active Substance: CENEGERMIN-BKBJ
     Indication: Neurotrophic keratopathy
     Route: 047
     Dates: start: 20240520
  2. PROBIOTIC 10B CELL [Concomitant]
  3. DIETARY SUPPLEMENT\HERBALS\MILK THISTLE [Concomitant]
     Active Substance: MILK THISTLE
  4. URTICA DIOICA LEAF [Concomitant]
     Active Substance: URTICA DIOICA LEAF
  5. CAPRYLIC ACID [Concomitant]
     Active Substance: CAPRYLIC ACID
  6. BERBERINE [Concomitant]
     Active Substance: BERBERINE
  7. FISH OIL [Concomitant]
     Active Substance: FISH OIL
  8. APPLE CIDER VINEGAR [Concomitant]
     Active Substance: APPLE CIDER VINEGAR
  9. HOMOCYSTEINE FORMULA [Concomitant]
  10. BONE DENSITY CALCIUM + D [Concomitant]
  11. VITAMIN D3 [Concomitant]
     Active Substance: CHOLECALCIFEROL
  12. MAGNESIUM [Concomitant]
     Active Substance: MAGNESIUM
  13. XIIDRA [Concomitant]
     Active Substance: LIFITEGRAST
  14. BIOTRUE HYDRATION BOOST [Concomitant]
     Active Substance: GLYCERIN
  15. IVIZIA [Concomitant]
     Active Substance: POVIDONE

REACTIONS (2)
  - Eye pain [Unknown]
  - Ocular discomfort [Unknown]
